FAERS Safety Report 5096050-5 (Version None)
Quarter: 2006Q3

REPORT INFORMATION
  Report Type: 
  Country: None (occurrence: None)
  Receive Date: 20060830
  Receipt Date: 20060815
  Transmission Date: 20061208
  Serious: Yes (Other)
  Sender: FDA-Public Use
  Company Number: 2006US-03294

PATIENT
  Age: 35 Year

DRUGS (1)
  1. ISOTRETINOIN [Suspect]

REACTIONS (2)
  - BACK PAIN [None]
  - DYSPNOEA [None]
